FAERS Safety Report 8019911-3 (Version None)
Quarter: 2012Q1

REPORT INFORMATION
  Report Type: 
  Country: None (occurrence: None)
  Receive Date: 20120103
  Receipt Date: 20111227
  Transmission Date: 20120608
  Serious: Yes (Other)
  Sender: FDA-Public Use
  Company Number: US-BAYER-2011-073270

PATIENT
  Age: 23 Year
  Sex: Female
  Weight: 85.714 kg

DRUGS (2)
  1. ZYRTEC [Concomitant]
  2. YASMIN [Suspect]
     Dosage: UNK
     Dates: start: 20090101, end: 20100101

REACTIONS (4)
  - CHOLECYSTITIS CHRONIC [None]
  - INJURY [None]
  - PAIN [None]
  - GALLBLADDER DISORDER [None]
